FAERS Safety Report 5743949-X (Version None)
Quarter: 2008Q2

REPORT INFORMATION
  Report Type: 
  Country: None (occurrence: None)
  Receive Date: 20080520
  Receipt Date: 20080508
  Transmission Date: 20081010
  Serious: Yes (Hospitalization)
  Sender: FDA-Public Use
  Company Number: JP-ASTRAZENECA-2008SE01726

PATIENT
  Age: 57 Year
  Sex: Male
  Weight: 75 kg

DRUGS (11)
  1. BLOPRESS [Suspect]
     Indication: HYPERTENSION
     Route: 048
     Dates: start: 20070323, end: 20070804
  2. AMARYL [Suspect]
     Indication: DIABETES MELLITUS
     Route: 048
     Dates: start: 20070322, end: 20070804
  3. AMARYL [Suspect]
     Route: 048
  4. DEPAS [Suspect]
     Route: 048
     Dates: end: 20070804
  5. ASPIRIN [Concomitant]
     Indication: CEREBRAL INFARCTION
     Route: 048
     Dates: start: 20070322, end: 20070804
  6. ASPIRIN [Concomitant]
     Route: 048
  7. OZAGREL [Concomitant]
     Indication: CEREBRAL INFARCTION
     Route: 065
     Dates: start: 20070330, end: 20070405
  8. ARGATROBAN [Concomitant]
     Indication: CEREBRAL INFARCTION
     Route: 042
     Dates: start: 20070323, end: 20070329
  9. (LOW MOLECULAR DEXTRAN) [Concomitant]
     Indication: CEREBRAL INFARCTION
     Route: 042
     Dates: start: 20070322, end: 20070326
  10. CALCIUM CHANNEL BLOCKERS [Concomitant]
     Indication: HYPERTENSION
     Route: 048
     Dates: start: 20070323, end: 20070804
  11. CALCIUM CHANNEL BLOCKERS [Concomitant]
     Route: 048

REACTIONS (1)
  - LIVER DISORDER [None]
